FAERS Safety Report 4724628-4 (Version None)
Quarter: 2005Q3

REPORT INFORMATION
  Report Type: 
  Country: None (occurrence: None)
  Receive Date: 20050721
  Receipt Date: 20050707
  Transmission Date: 20060218
  Serious: Yes (Hospitalization)
  Sender: FDA-Public Use
  Company Number: 2005BI011419

PATIENT
  Age: 54 Year
  Sex: Female

DRUGS (3)
  1. AVONEX [Suspect]
     Indication: RELAPSING-REMITTING MULTIPLE SCLEROSIS
     Dosage: 30 UG; QW; IM
     Route: 030
     Dates: start: 20020101
  2. ASPIRIN [Concomitant]
  3. LEVOTHYROXINE [Concomitant]

REACTIONS (5)
  - BLOOD CULTURE POSITIVE [None]
  - COMA [None]
  - CONVULSION [None]
  - MENINGITIS BACTERIAL [None]
  - STREPTOCOCCAL INFECTION [None]
